FAERS Safety Report 8116794-8 (Version None)
Quarter: 2012Q1

REPORT INFORMATION
  Report Type: 
  Country: None (occurrence: None)
  Receive Date: 20120206
  Receipt Date: 20120131
  Transmission Date: 20120608
  Serious: Yes (Disabling)
  Sender: FDA-Public Use
  Company Number: PHHY2012MX008529

PATIENT
  Sex: Female

DRUGS (3)
  1. OMEPRAZOLE [Concomitant]
     Indication: ABDOMINAL PAIN UPPER
     Dosage: UNK UKN, UNK
     Dates: start: 20110101
  2. ZOLEDRONOC ACID [Suspect]
     Indication: OSTEOPOROSIS
     Dosage: 5 MG/100 ML ONCE A YEAR
     Route: 042
     Dates: start: 20110201
  3. TROFENIR [Concomitant]
     Indication: PAIN
     Dosage: UNK UKN, UNK
     Dates: start: 20030101

REACTIONS (1)
  - DEAFNESS [None]
